FAERS Safety Report 6726045-4 (Version None)
Quarter: 2010Q2

REPORT INFORMATION
  Report Type: 
  Country: None (occurrence: None)
  Receive Date: 20100514
  Receipt Date: 20100510
  Transmission Date: 20101027
  Serious: Yes (Other)
  Sender: FDA-Public Use
  Company Number: SE-MERCK-1004SWE00004

PATIENT
  Age: 64 Year
  Sex: Male

DRUGS (10)
  1. JANUVIA [Suspect]
     Indication: DIABETES MELLITUS
     Route: 048
     Dates: start: 20091209, end: 20091230
  2. SIBUTRAMINE HYDROCHLORIDE [Concomitant]
     Route: 065
  3. DESLORATADINE [Concomitant]
     Route: 065
  4. CYANOCOBALAMIN [Concomitant]
     Route: 065
  5. GLIPIZIDE [Concomitant]
     Route: 065
  6. FUROSEMIDE [Concomitant]
     Route: 065
  7. METFORMIN HYDROCHLORIDE [Concomitant]
     Route: 065
  8. PIOGLITAZONE HYDROCHLORIDE [Concomitant]
     Route: 048
     Dates: end: 20091201
  9. SIMVASTATIN [Concomitant]
     Route: 065
  10. FINASTERIDE [Concomitant]
     Route: 065

REACTIONS (3)
  - DIABETES MELLITUS [None]
  - DIARRHOEA [None]
  - VOMITING [None]
